FAERS Safety Report 19624009 (Version 3)
Quarter: 2025Q4

REPORT INFORMATION
  Report Type: Spontaneous
  Country: US (occurrence: US)
  Receive Date: 20210729
  Receipt Date: 20251219
  Transmission Date: 20260118
  Serious: Yes (Hospitalization, Other)
  Sender: AUROBINDO
  Company Number: US-MLMSERVICE-20210709-2991979-1

PATIENT
  Age: 31 Year
  Sex: Male

DRUGS (3)
  1. CLOZAPINE [Suspect]
     Active Substance: CLOZAPINE
     Indication: Schizophrenia
     Dosage: UNK
     Route: 065
  2. CLOZAPINE [Suspect]
     Active Substance: CLOZAPINE
     Dosage: 50 MILLIGRAM, ONCE A DAY (50-200MG PO DAILY (FOR ABOUT 8 MONTHS ))
     Route: 061
     Dates: start: 201804
  3. CLOZAPINE [Suspect]
     Active Substance: CLOZAPINE
     Dosage: 200 MILLIGRAM, ONCE A DAY (50-200MG PO DAILY (FOR ABOUT 8 MONTHS))
     Route: 061
     Dates: start: 201811

REACTIONS (4)
  - Acute lymphocytic leukaemia [Recovering/Resolving]
  - Hyperleukocytosis [Recovering/Resolving]
  - Normocytic anaemia [Recovering/Resolving]
  - Thrombocytopenia [Recovering/Resolving]

NARRATIVE: CASE EVENT DATE: 20181101
